FAERS Safety Report 4841238-9 (Version None)
Quarter: 2005Q4

REPORT INFORMATION
  Report Type: 
  Country: None (occurrence: None)
  Receive Date: 20051130
  Receipt Date: 20051123
  Transmission Date: 20060501
  Serious: Yes (Hospitalization)
  Sender: FDA-Public Use
  Company Number: FR-AVENTIS-200513871FR

PATIENT
  Age: 62 Year
  Sex: Female

DRUGS (12)
  1. LASILIX [Suspect]
     Route: 048
  2. CAPTOPRIL [Suspect]
     Route: 048
  3. LOPRESSOR [Suspect]
     Route: 048
  4. PREVISCAN [Suspect]
     Route: 048
     Dates: start: 20050801, end: 20050824
  5. SINTROM [Suspect]
     Route: 048
     Dates: start: 20050818, end: 20050824
  6. DELURSAN [Suspect]
     Route: 048
  7. NPH INSULIN [Concomitant]
     Indication: DIABETES MELLITUS INSULIN-DEPENDENT
     Dosage: DOSE: 20+14
     Route: 058
  8. LANTUS [Concomitant]
     Route: 058
  9. ACTRAPID [Concomitant]
     Route: 058
  10. DIFRAREL [Concomitant]
     Route: 048
  11. CALCIUM WITH VITAMIN D [Concomitant]
     Route: 048
  12. DUPHALAC [Concomitant]
     Route: 048

REACTIONS (2)
  - CUTANEOUS VASCULITIS [None]
  - HEPATIC ENCEPHALOPATHY [None]
